FAERS Safety Report 9380128 (Version 2)
Quarter: 2013Q3

REPORT INFORMATION
  Report Type: Spontaneous
  Country: ES (occurrence: None)
  Receive Date: 20130628
  Receipt Date: 20130710
  Transmission Date: 20140515
  Serious: Yes (Life-Threatening, Hospitalization, Other)
  Sender: FDA-Public Use
  Company Number: AUR-APL-2013-05235

PATIENT
  Age: 43 Year
  Sex: Male

DRUGS (3)
  1. OLANZAPINE [Suspect]
     Indication: DELUSION
  2. DIAZEPAM (DIAZEPAM) [Concomitant]
  3. ESCITALOPRAM (ESCITALOPRAM) [Concomitant]

REACTIONS (6)
  - Neuroleptic malignant syndrome [None]
  - Parkinsonism [None]
  - Dysphagia [None]
  - Anxiety [None]
  - Depression [None]
  - Hypernatraemia [None]
